FAERS Safety Report 12848972 (Version 1)
Quarter: 2016Q4

REPORT INFORMATION
  Report Type: Not Available
  Country: US (occurrence: US)
  Receive Date: 20161014
  Receipt Date: 20161014
  Transmission Date: 20170207
  Serious: Yes (Life-Threatening, Hospitalization)
  Sender: FDA-Public Use
  Company Number: US-ANIPHARMA-2016-US-008130

PATIENT
  Age: 17 Year
  Sex: Female

DRUGS (3)
  1. LORATADINE. [Suspect]
     Active Substance: LORATADINE
     Dosage: UNKNOWN
     Route: 048
  2. IBUPROFEN (NON-SPECIFIC) [Suspect]
     Active Substance: IBUPROFEN
     Dosage: UNKNOWN
     Route: 048
  3. ONDANSETRON [Suspect]
     Active Substance: ONDANSETRON
     Dosage: UNKNOWN
     Route: 048

REACTIONS (3)
  - Generalised tonic-clonic seizure [Recovered/Resolved]
  - Metabolic acidosis [Recovered/Resolved]
  - Suicide attempt [Unknown]
